FAERS Safety Report 7310014-X (Version None)
Quarter: 2011Q1

REPORT INFORMATION
  Report Type: 
  Country: None (occurrence: None)
  Receive Date: 20110224
  Receipt Date: 20100818
  Transmission Date: 20110831
  Serious: Yes (Hospitalization)
  Sender: FDA-Public Use
  Company Number: US-BAYER-201017356NA

PATIENT
  Sex: Female
  Weight: 124.72 kg

DRUGS (15)
  1. ANTIBIOTICS [Concomitant]
  2. PAROXETINE [Concomitant]
  3. UNCODEABLE ^UNCLASSIFIABLE^ [Concomitant]
  4. ALBUTEROL [Concomitant]
  5. CYCLOBENZAPRINE [Concomitant]
  6. ADVAIR HFA [Concomitant]
  7. PAXIL [Concomitant]
     Indication: ANXIETY DISORDER
  8. HYDROCODONE [Concomitant]
  9. YAZ [Suspect]
     Indication: ORAL CONTRACEPTION
     Route: 048
     Dates: start: 20071101, end: 20080317
  10. AVELOX [Concomitant]
  11. APAP TAB [Concomitant]
  12. UNCODEABLE ^UNCLASSIFIABLE^ [Concomitant]
     Dosage: 90 UNK, UNK
  13. ALPRAZOLAM [Concomitant]
     Dosage: 0.5 MG, UNK
  14. CIPROFLOXACIN [Concomitant]
  15. NSAID'S [Concomitant]

REACTIONS (3)
  - PULMONARY EMBOLISM [None]
  - COUGH [None]
  - DYSPNOEA [None]
